FAERS Safety Report 23968084 (Version 1)
Quarter: 2024Q2

REPORT INFORMATION
  Report Type: Spontaneous
  Country: US (occurrence: US)
  Receive Date: 20240612
  Receipt Date: 20240612
  Transmission Date: 20240716
  Serious: No
  Sender: FDA-Public Use
  Company Number: US-PERRIGO-23US008753

PATIENT
  Sex: Male
  Weight: 95.238 kg

DRUGS (2)
  1. DICLOFENAC SODIUM [Suspect]
     Active Substance: DICLOFENAC\DICLOFENAC SODIUM
     Indication: Arthralgia
     Dosage: 2 G, 1 TO 2 TIMES A DAY, PRN
     Route: 061
     Dates: start: 2021
  2. DICLOFENAC SODIUM [Suspect]
     Active Substance: DICLOFENAC\DICLOFENAC SODIUM
     Indication: Arthritis
     Dosage: 2 G, 1 TO 2 TIMES DAY, PRN
     Route: 061
     Dates: start: 20230630

REACTIONS (2)
  - Off label use [Not Recovered/Not Resolved]
  - Underdose [Not Recovered/Not Resolved]

NARRATIVE: CASE EVENT DATE: 20210101
